FAERS Safety Report 9927935 (Version 1)
Quarter: 2014Q1

REPORT INFORMATION
  Report Type: Spontaneous
  Country: US (occurrence: US)
  Receive Date: 20140227
  Receipt Date: 20140227
  Transmission Date: 20141002
  Serious: No
  Sender: FDA-Public Use
  Company Number: US-PFIZER INC-2014056650

PATIENT
  Age: 69 Year
  Sex: Female
  Weight: 90.7 kg

DRUGS (7)
  1. ZOLOFT [Suspect]
     Indication: OBSESSIVE-COMPULSIVE DISORDER
     Dosage: 100 MG, 2X/DAY
     Route: 048
     Dates: start: 201307, end: 201307
  2. ZOLOFT [Suspect]
     Indication: ANXIETY
     Dosage: 75 MG, DAILY
     Route: 048
     Dates: start: 201307, end: 201401
  3. ZOLOFT [Suspect]
     Indication: DEPRESSION
  4. OMEPRAZOLE [Concomitant]
     Indication: GASTROOESOPHAGEAL REFLUX DISEASE
     Dosage: UNK
  5. CADUET [Concomitant]
     Indication: HYPERTENSION
     Dosage: UNK
  6. QUINAPRIL [Concomitant]
     Indication: HYPERTENSION
     Dosage: UNK
  7. SINGULAIR [Concomitant]
     Indication: VASOMOTOR RHINITIS
     Dosage: UNK

REACTIONS (2)
  - Intentional drug misuse [Unknown]
  - Drug ineffective [Unknown]
